FAERS Safety Report 9958584 (Version 1)
Quarter: 2014Q1

REPORT INFORMATION
  Report Type: Spontaneous
  Country: US (occurrence: None)
  Receive Date: 20140124
  Receipt Date: 20140124
  Transmission Date: 20141002
  Serious: Yes (Other)
  Sender: FDA-Public Use
  Company Number: 2011AP001145

PATIENT
  Age: 15 Year
  Sex: Male

DRUGS (4)
  1. ONDANSETRON [Suspect]
     Indication: VOMITING
  2. SEVOFLURANE [Suspect]
     Indication: GENERAL ANAESTHESIA
     Route: 055
  3. ISOFLURANE [Suspect]
     Indication: GENERAL ANAESTHESIA
     Route: 055
  4. PANCURONIUM BROMIDE [Suspect]
     Indication: GENERAL ANAESTHESIA
     Route: 055

REACTIONS (1)
  - Tachycardia [None]
